FAERS Safety Report 6899296-6 (Version None)
Quarter: 2010Q3

REPORT INFORMATION
  Report Type: 
  Country: None (occurrence: None)
  Receive Date: 20100802
  Receipt Date: 20080613
  Transmission Date: 20110219
  Serious: No
  Sender: FDA-Public Use
  Company Number: US-PFIZER INC-2007099058

PATIENT
  Sex: Female
  Weight: 52.6 kg

DRUGS (4)
  1. LYRICA [Suspect]
     Indication: FIBROMYALGIA
     Route: 048
     Dates: start: 20070928, end: 20080417
  2. ALL OTHER THERAPEUTIC PRODUCTS [Concomitant]
  3. IBUPROFEN [Concomitant]
  4. TRAMADOL HYDROCHLORIDE [Concomitant]
     Dates: start: 20071001

REACTIONS (3)
  - EYE OEDEMA [None]
  - FATIGUE [None]
  - FIBROMYALGIA [None]
